FAERS Safety Report 6311604-3 (Version None)
Quarter: 2009Q3

REPORT INFORMATION
  Report Type: 
  Country: None (occurrence: None)
  Receive Date: 20090817
  Receipt Date: 20090811
  Transmission Date: 20100115
  Serious: Yes (Other)
  Sender: FDA-Public Use
  Company Number: A0801642A

PATIENT
  Age: 55 Year
  Sex: Female

DRUGS (15)
  1. ADVAIR HFA [Suspect]
     Indication: CHRONIC OBSTRUCTIVE PULMONARY DISEASE
     Dosage: 1PUFF TWICE PER DAY
     Route: 055
     Dates: start: 20020101
  2. NASONEX [Concomitant]
  3. DOCUSATE SODIUM [Concomitant]
  4. POLYETHYLENE GLYCOL [Concomitant]
  5. SINGULAIR [Concomitant]
  6. WELLBUTRIN SR [Concomitant]
  7. PRILOSEC [Concomitant]
  8. PREMPRO [Concomitant]
  9. PREDNISONE [Concomitant]
  10. VICODIN [Concomitant]
  11. CENTRUM SILVER [Concomitant]
  12. VIT. C [Concomitant]
  13. CALCIUM [Concomitant]
  14. GLUCOSAMINE [Concomitant]
  15. FISH OIL [Concomitant]

REACTIONS (7)
  - ABNORMAL SENSATION IN EYE [None]
  - BLINDNESS [None]
  - CATARACT [None]
  - EYE DISCHARGE [None]
  - PHOTOPHOBIA [None]
  - VISION BLURRED [None]
  - VISUAL IMPAIRMENT [None]
